FAERS Safety Report 8555743-5 (Version None)
Quarter: 2012Q3

REPORT INFORMATION
  Report Type: 
  Country: None (occurrence: None)
  Receive Date: 20120801
  Receipt Date: 20120718
  Transmission Date: 20120928
  Serious: Yes (Other)
  Sender: FDA-Public Use
  Company Number: IT-RANBAXY-2012RR-58455

PATIENT
  Age: 67 Year
  Sex: Female

DRUGS (6)
  1. LINEZOLID [Concomitant]
     Indication: PRODUCT USED FOR UNKNOWN INDICATION
     Dosage: 600MG EVEY 72 HOURS
     Route: 065
  2. LINEZOLID [Interacting]
     Indication: PRODUCT USED FOR UNKNOWN INDICATION
     Dosage: 600 MG EVERY 12 HOURS
     Route: 065
  3. BARNIDIPINE [Interacting]
     Indication: PRODUCT USED FOR UNKNOWN INDICATION
     Dosage: UNK
     Route: 065
  4. OMEPRAZOLE [Interacting]
     Indication: PRODUCT USED FOR UNKNOWN INDICATION
     Dosage: UNK
     Route: 065
  5. LINEZOLID [Interacting]
     Dosage: SHE WAS VARYING HER DOSAGES  FROM 600MG EVERY 24 HOURS TO 600MG EVERY 36 HOURS
     Route: 065
  6. CARVEDILOL [Suspect]
     Indication: PRODUCT USED FOR UNKNOWN INDICATION
     Dosage: UNK
     Route: 065

REACTIONS (9)
  - HYPERLACTACIDAEMIA [None]
  - DRUG INTERACTION [None]
  - HAEMOGLOBIN DECREASED [None]
  - PLATELET COUNT DECREASED [None]
  - TREATMENT NONCOMPLIANCE [None]
  - RED BLOOD CELL COUNT DECREASED [None]
  - INCORRECT DRUG ADMINISTRATION DURATION [None]
  - HAEMATOTOXICITY [None]
  - INCORRECT DOSE ADMINISTERED [None]
